FAERS Safety Report 10983037 (Version 1)
Quarter: 2015Q2

REPORT INFORMATION
  Report Type: Spontaneous
  Country: CA (occurrence: CA)
  Receive Date: 20150403
  Receipt Date: 20150403
  Transmission Date: 20150821
  Serious: Yes (Hospitalization)
  Sender: FDA-Public Use
  Company Number: CA-TEVA-552264ACC

PATIENT
  Sex: Male
  Weight: 55 kg

DRUGS (5)
  1. VITAMIN D [Concomitant]
     Active Substance: CHOLECALCIFEROL
     Dosage: UNKNOWN FORM STRENGTH
     Route: 065
  2. CALCIUM AND MAGNESIUM WITH VITAMIN D [Concomitant]
     Dosage: UNKNOWN FORM STRENGTH
     Route: 065
  3. NAPROXEN. [Suspect]
     Active Substance: NAPROXEN
     Dosage: 750 MILLIGRAM DAILY;
     Route: 065
  4. FORTEO [Suspect]
     Active Substance: TERIPARATIDE
     Indication: OSTEOPOROSIS
     Dosage: UNKNOWN FORM STRENGTH
     Route: 058
  5. PMS-IPRATROPIUM [Concomitant]
     Dosage: UNKNOWN FORM STRENGTH
     Route: 065

REACTIONS (5)
  - Abdominal pain upper [Unknown]
  - Abdominal pain [Unknown]
  - Oesophageal stenosis [Unknown]
  - Oesophageal ulcer [Unknown]
  - Large intestinal obstruction [Unknown]
